FAERS Safety Report 25399657 (Version 2)
Quarter: 2025Q2

REPORT INFORMATION
  Report Type: Spontaneous
  Country: US (occurrence: US)
  Receive Date: 20250605
  Receipt Date: 20250610
  Transmission Date: 20250716
  Serious: Yes (Hospitalization, Other)
  Sender: LEO PHARM
  Company Number: US-LEO Pharma-380240

PATIENT
  Age: 41 Year
  Sex: Male
  Weight: 86 kg

DRUGS (1)
  1. ADBRY [Suspect]
     Active Substance: TRALOKINUMAB-LDRM
     Indication: Dermatitis atopic

REACTIONS (5)
  - Pleural effusion [Unknown]
  - Diarrhoea [Unknown]
  - Fatigue [Unknown]
  - Chest discomfort [Unknown]
  - Drug hypersensitivity [Unknown]

NARRATIVE: CASE EVENT DATE: 20240801
